FAERS Safety Report 9555825 (Version 2)
Quarter: 2013Q4

REPORT INFORMATION
  Report Type: Spontaneous
  Country: US (occurrence: US)
  Receive Date: 20130926
  Receipt Date: 20131011
  Transmission Date: 20140711
  Serious: Yes (Hospitalization)
  Sender: FDA-Public Use
  Company Number: US-UCBSA-098992

PATIENT
  Age: 7 Year
  Sex: Male

DRUGS (2)
  1. METHYLPHENIDATE HYDROCHLORIDE USP [Suspect]
     Route: 048
  2. METHADONE [Suspect]
     Dosage: 10 MG; TWO DOSES
     Route: 048

REACTIONS (4)
  - Drug dispensing error [Recovered/Resolved]
  - Lethargy [Recovered/Resolved]
  - Vomiting [Recovered/Resolved]
  - Wrong drug administered [Recovered/Resolved]
